FAERS Safety Report 9382367 (Version 1)
Quarter: 2013Q3

REPORT INFORMATION
  Report Type: Report from Study
  Country: AR (occurrence: AR)
  Receive Date: 20130703
  Receipt Date: 20130703
  Transmission Date: 20140515
  Serious: Yes (Hospitalization)
  Sender: FDA-Public Use
  Company Number: AR-BRISTOL-MYERS SQUIBB COMPANY-19056290

PATIENT
  Age: 32 Year
  Sex: Female

DRUGS (1)
  1. NULOJIX [Suspect]
     Dosage: 1DF:2 VIALS OF 250MG

REACTIONS (1)
  - Osteomyelitis [Unknown]
